FAERS Safety Report 21299987 (Version 1)
Quarter: 2022Q3

REPORT INFORMATION
  Report Type: Spontaneous
  Country: None (occurrence: FR)
  Receive Date: 20220906
  Receipt Date: 20220906
  Transmission Date: 20221027
  Serious: Yes (Hospitalization)
  Sender: FDA-Public Use
  Company Number: FR-AFSSAPS-AVNY20220263

PATIENT
  Age: 27 Year
  Sex: Male

DRUGS (1)
  1. NITROUS OXIDE [Suspect]
     Active Substance: NITROUS OXIDE
     Indication: Product used for unknown indication
     Route: 065

REACTIONS (5)
  - Fall [Recovered/Resolved]
  - Hemiplegia [Recovered/Resolved]
  - Depressed level of consciousness [Recovered/Resolved]
  - Vomiting projectile [Recovered/Resolved]
  - Headache [Recovered/Resolved]
